FAERS Safety Report 7753965-4 (Version None)
Quarter: 2011Q3

REPORT INFORMATION
  Report Type: 
  Country: None (occurrence: None)
  Receive Date: 20110915
  Receipt Date: 20110908
  Transmission Date: 20111222
  Serious: Yes (Other)
  Sender: FDA-Public Use
  Company Number: US-SANOFI-AVENTIS-2011SA059426

PATIENT
  Age: 85 Year
  Sex: Female

DRUGS (1)
  1. PLAVIX [Suspect]
     Route: 065
     Dates: start: 20110801

REACTIONS (1)
  - VISUAL ACUITY REDUCED [None]
